FAERS Safety Report 8544882-0 (Version None)
Quarter: 2012Q3

REPORT INFORMATION
  Report Type: 
  Country: None (occurrence: None)
  Receive Date: 20120727
  Receipt Date: 20120112
  Transmission Date: 20120928
  Serious: Yes (Hospitalization)
  Sender: FDA-Public Use
  Company Number: US-ROCHE-1092433

PATIENT
  Sex: Male

DRUGS (2)
  1. PREDNISONE [Concomitant]
  2. XOLAIR [Suspect]
     Indication: ASTHMA

REACTIONS (3)
  - ARTHRALGIA [None]
  - HEADACHE [None]
  - PRURITUS [None]
